FAERS Safety Report 10441752 (Version 1)
Quarter: 2014Q3

REPORT INFORMATION
  Report Type: Spontaneous
  Country: US (occurrence: US)
  Receive Date: 20140908
  Receipt Date: 20140908
  Transmission Date: 20150326
  Serious: Yes (Hospitalization)
  Sender: FDA-Public Use
  Company Number: US-PFIZER INC-2014247203

PATIENT
  Sex: Male

DRUGS (2)
  1. LYRICA [Suspect]
     Active Substance: PREGABALIN
     Indication: NEURALGIA
     Dosage: UNK
  2. LYRICA [Suspect]
     Active Substance: PREGABALIN
     Indication: INTERVERTEBRAL DISC PROTRUSION

REACTIONS (8)
  - Apparent death [Recovered/Resolved]
  - Dysuria [Recovered/Resolved]
  - Pain [Recovered/Resolved]
  - Dysstasia [Recovered/Resolved]
  - Gait disturbance [Recovered/Resolved]
  - Tongue disorder [Recovered/Resolved]
  - Urinary retention [Recovered/Resolved]
  - Hemiparesis [Recovered/Resolved]

NARRATIVE: CASE EVENT DATE: 2014
